FAERS Safety Report 9263397 (Version 1)
Quarter: 2013Q2

REPORT INFORMATION
  Report Type: Report from Study
  Country: US (occurrence: US)
  Receive Date: 20130430
  Receipt Date: 20130430
  Transmission Date: 20140414
  Serious: No
  Sender: FDA-Public Use
  Company Number: US-ABBOTT-13P-163-1073613-00

PATIENT
  Age: 57 Year
  Sex: Male

DRUGS (2)
  1. CREON [Suspect]
     Indication: PANCREATITIS
     Dosage: THREE CAPSULES PER MEAL
     Dates: start: 201301, end: 20130227
  2. CREON [Suspect]
     Dosage: FOUR CAPSULES PER MEAL
     Dates: start: 20130227

REACTIONS (2)
  - Weight decreased [Recovering/Resolving]
  - Diarrhoea [Not Recovered/Not Resolved]
